FAERS Safety Report 8377239-6 (Version None)
Quarter: 2012Q2

REPORT INFORMATION
  Report Type: 
  Country: None (occurrence: None)
  Receive Date: 20120522
  Receipt Date: 20120509
  Transmission Date: 20120825
  Serious: Yes (Other)
  Sender: FDA-Public Use
  Company Number: US-COVIDIEN/TYCO HEALTHCARE/MALLINCKRODT-T201201720

PATIENT
  Age: 6 Year
  Sex: Female

DRUGS (4)
  1. FENTANYL CITRATE [Suspect]
     Indication: SEDATIVE THERAPY
     Dosage: 1 ?G/KG, SINGLE
     Route: 042
  2. FENTANYL CITRATE [Suspect]
     Dosage: UNK, SINGLE
  3. PENTOBARBITAL CAP [Suspect]
     Dosage: UNK, SINGLE
     Route: 042
  4. PENTOBARBITAL CAP [Suspect]
     Indication: SEDATIVE THERAPY
     Dosage: 6 MG/KG, SINGLE
     Route: 042

REACTIONS (1)
  - HYPOXIA [None]
